FAERS Safety Report 25761307 (Version 1)
Quarter: 2025Q3

REPORT INFORMATION
  Report Type: Spontaneous
  Country: US (occurrence: US)
  Receive Date: 20250904
  Receipt Date: 20250904
  Transmission Date: 20251021
  Serious: No
  Sender: CIPLA
  Company Number: US-CIPLA LTD.-2024US09390

PATIENT

DRUGS (1)
  1. DICLOFENAC [Suspect]
     Active Substance: DICLOFENAC
     Indication: Promotion of wound healing
     Route: 061

REACTIONS (3)
  - Product use in unapproved indication [Unknown]
  - Prescription drug used without a prescription [Unknown]
  - Product administered at inappropriate site [Unknown]
